FAERS Safety Report 9556845 (Version 1)
Quarter: 2013Q3

REPORT INFORMATION
  Report Type: Spontaneous
  Country: US (occurrence: None)
  Receive Date: 20130724
  Receipt Date: 20130724
  Transmission Date: 20140515
  Serious: Yes (Other)
  Sender: FDA-Public Use
  Company Number: PHEH2013US009598

PATIENT
  Sex: Female

DRUGS (3)
  1. GILENYA (FINGOLIMOD) CAPSULE, 0.5MG [Suspect]
     Indication: MULTIPLE SCLEROSIS
     Route: 048
     Dates: start: 20130107
  2. PAXIL (PAROXETINE HYDROCHLORIDE) [Concomitant]
  3. XANAX (ALPRAZOLAM) [Concomitant]

REACTIONS (2)
  - Panic attack [None]
  - Condition aggravated [None]
